FAERS Safety Report 9880400 (Version 1)
Quarter: 2014Q1

REPORT INFORMATION
  Report Type: Other
  Country: GB (occurrence: GB)
  Receive Date: 20140207
  Receipt Date: 20140207
  Transmission Date: 20141002
  Serious: Yes (Hospitalization)
  Sender: FDA-Public Use
  Company Number: GB-SUN PHARMACEUTICAL INDUSTRIES LTD-2014SUN00224

PATIENT
  Age: 80 Year
  Sex: Male

DRUGS (3)
  1. BICALUTAMIDE TABS 50MG [Suspect]
     Indication: PROSTATISM
     Dosage: 150 MG, QD
     Route: 048
  2. NAPROXEN [Concomitant]
     Dosage: UNK
     Dates: start: 201310
  3. OMEPRAZOLE [Concomitant]
     Dosage: UNK
     Dates: start: 201310

REACTIONS (1)
  - Acute myocardial infarction [Recovering/Resolving]
